FAERS Safety Report 14382666 (Version 1)
Quarter: 2018Q1

REPORT INFORMATION
  Report Type: Report from Study
  Country: US (occurrence: US)
  Receive Date: 20180112
  Receipt Date: 20180112
  Transmission Date: 20180509
  Serious: Yes (Death, Hospitalization, Other)
  Sender: FDA-Public Use
  Company Number: US-ELI_LILLY_AND_COMPANY-16306854

PATIENT
  Age: 67 Year
  Sex: Male
  Weight: 61 kg

DRUGS (8)
  1. CETUXIMAB. [Suspect]
     Active Substance: CETUXIMAB
     Dosage: 1593 MG, UNKNOWN
     Route: 042
     Dates: start: 20120111, end: 20120111
  2. PACLITAXEL. [Concomitant]
     Active Substance: PACLITAXEL
     Indication: OESOPHAGEAL ADENOCARCINOMA
     Dosage: 263 MG, UNKNOWN
     Route: 042
     Dates: start: 20111205
  3. CISPLATIN. [Concomitant]
     Active Substance: CISPLATIN
     Indication: OESOPHAGEAL ADENOCARCINOMA
     Dosage: 114 MG, UNKNOWN
     Route: 042
     Dates: start: 20111205, end: 20111212
  4. CETUXIMAB. [Suspect]
     Active Substance: CETUXIMAB
     Indication: OESOPHAGEAL ADENOCARCINOMA
     Dosage: 1593 MG, UNKNOWN
     Route: 065
     Dates: start: 20111205
  5. PACLITAXEL. [Concomitant]
     Active Substance: PACLITAXEL
     Dosage: 177 MG, UNKNOWN
     Route: 042
     Dates: end: 20111212
  6. CETUXIMAB. [Suspect]
     Active Substance: CETUXIMAB
     Dosage: 1163 MG, UNKNOWN
     Route: 065
     Dates: end: 20111212
  7. CISPLATIN. [Concomitant]
     Active Substance: CISPLATIN
     Dosage: 114 MG, UNKNOWN
     Route: 042
     Dates: start: 20120111, end: 20120111
  8. PACLITAXEL. [Concomitant]
     Active Substance: PACLITAXEL
     Dosage: 263 MG, UNKNOWN
     Route: 042
     Dates: start: 20120111, end: 20120111

REACTIONS (7)
  - Pneumonia [Recovered/Resolved with Sequelae]
  - Dermatitis acneiform [Recovered/Resolved with Sequelae]
  - Oesophageal perforation [Recovered/Resolved with Sequelae]
  - Dysphagia [Recovered/Resolved with Sequelae]
  - Oesophageal haemorrhage [Fatal]
  - Dyspnoea [Recovered/Resolved with Sequelae]
  - Atrial fibrillation [Recovered/Resolved]

NARRATIVE: CASE EVENT DATE: 20111216
